FAERS Safety Report 17400897 (Version 7)
Quarter: 2021Q1

REPORT INFORMATION
  Report Type: Report from Study
  Country: US (occurrence: US)
  Receive Date: 20200211
  Receipt Date: 20210306
  Transmission Date: 20210419
  Serious: Yes (Other)
  Sender: FDA-Public Use
  Company Number: NVSC2020US033420

PATIENT
  Age: 60 Year
  Sex: Female

DRUGS (2)
  1. XIIDRA [Suspect]
     Active Substance: LIFITEGRAST
     Indication: PRODUCT USED FOR UNKNOWN INDICATION
     Dosage: UNK
     Route: 065
  2. ILARIS [Suspect]
     Active Substance: CANAKINUMAB
     Indication: STILL^S DISEASE
     Dosage: 150 MG, QMO
     Route: 058
     Dates: start: 20190906

REACTIONS (8)
  - Hepatic enzyme increased [Not Recovered/Not Resolved]
  - Condition aggravated [Unknown]
  - Blood cholesterol increased [Not Recovered/Not Resolved]
  - Product dose omission issue [Unknown]
  - Stress [Unknown]
  - Drug ineffective [Unknown]
  - Product availability issue [Unknown]
  - Still^s disease [Unknown]

NARRATIVE: CASE EVENT DATE: 20200101
